FAERS Safety Report 14193018 (Version 1)
Quarter: 2017Q4

REPORT INFORMATION
  Report Type: Spontaneous
  Country: BR (occurrence: BR)
  Receive Date: 20171115
  Receipt Date: 20171115
  Transmission Date: 20180321
  Serious: Yes (Hospitalization, Other)
  Sender: FDA-Public Use
  Company Number: BR-BRISTOL-MYERS SQUIBB COMPANY-BMS-2017-101127

PATIENT
  Age: 48 Year
  Sex: Male

DRUGS (1)
  1. NIVOLUMAB [Suspect]
     Active Substance: NIVOLUMAB
     Indication: METASTATIC MALIGNANT MELANOMA
     Dosage: EIGHT DOSES
     Route: 065
     Dates: start: 201707

REACTIONS (6)
  - Sinusitis [Unknown]
  - Oedema [Unknown]
  - Dysphagia [Unknown]
  - Weight increased [Unknown]
  - Insomnia [Unknown]
  - Thyroid disorder [Unknown]
